FAERS Safety Report 7617344-2 (Version None)
Quarter: 2011Q3

REPORT INFORMATION
  Report Type: 
  Country: None (occurrence: None)
  Receive Date: 20110718
  Receipt Date: 20110705
  Transmission Date: 20111222
  Serious: Yes (Hospitalization)
  Sender: FDA-Public Use
  Company Number: PL-UCBSA-035530

PATIENT
  Sex: Female
  Weight: 70 kg

DRUGS (8)
  1. MELOXAM [Concomitant]
     Indication: RHEUMATOID ARTHRITIS
     Route: 048
     Dates: start: 20071114
  2. METHYLPREDNISOLONE [Concomitant]
     Indication: RHEUMATOID ARTHRITIS
     Route: 048
     Dates: start: 20090805
  3. CERTOLIZUMAB PEGOL [Suspect]
     Indication: RHEUMATOID ARTHRITIS
     Dosage: NO. OF DOSES RECEIVED: 28
     Route: 058
     Dates: start: 20100504, end: 20110617
  4. CONTIX [Concomitant]
     Indication: GASTRITIS PROPHYLAXIS
     Route: 048
     Dates: start: 20090805
  5. METHOTREXATE [Concomitant]
     Indication: RHEUMATOID ARTHRITIS
     Route: 048
     Dates: start: 20081106, end: 20090805
  6. NORDETTE-28 [Concomitant]
     Indication: ORAL CONTRACEPTION
     Route: 048
     Dates: start: 20080101
  7. METHOTREXATE [Concomitant]
     Route: 048
     Dates: start: 20090805
  8. ACIDUM FOLICUM [Concomitant]
     Indication: RHEUMATOID ARTHRITIS
     Route: 048
     Dates: start: 20081106

REACTIONS (1)
  - RESPIRATORY TRACT INFECTION [None]
